FAERS Safety Report 24374606 (Version 1)
Quarter: 2024Q3

REPORT INFORMATION
  Report Type: Spontaneous
  Country: US (occurrence: US)
  Receive Date: 20240927
  Receipt Date: 20240927
  Transmission Date: 20241017
  Serious: No
  Sender: SANOFI AVENTIS
  Company Number: US-SA-2024SA275496

PATIENT
  Age: 8 Year
  Sex: Male
  Weight: 27.27 kg

DRUGS (3)
  1. DUPIXENT [Suspect]
     Active Substance: DUPILUMAB
     Indication: Dermatitis atopic
     Dosage: 300 MG, QMN
     Route: 058
     Dates: start: 202207
  2. VALACYCLOVIR [Concomitant]
     Active Substance: VALACYCLOVIR HYDROCHLORIDE
     Dosage: UNK
  3. TRIAMCINOLONE ACETONIDE [Concomitant]
     Active Substance: TRIAMCINOLONE ACETONIDE
     Dosage: UNK

REACTIONS (6)
  - Dacryostenosis acquired [Not Recovered/Not Resolved]
  - Dental plaque [Not Recovered/Not Resolved]
  - Fear of injection [Not Recovered/Not Resolved]
  - Eye inflammation [Not Recovered/Not Resolved]
  - Eczema [Not Recovered/Not Resolved]
  - Injection site pain [Not Recovered/Not Resolved]

NARRATIVE: CASE EVENT DATE: 20220101
